FAERS Safety Report 6588062-7 (Version None)
Quarter: 2010Q1

REPORT INFORMATION
  Report Type: 
  Country: None (occurrence: None)
  Receive Date: 20100218
  Receipt Date: 20100128
  Transmission Date: 20100710
  Serious: No
  Sender: FDA-Public Use
  Company Number: PHHY2009JP49921

PATIENT
  Sex: Male

DRUGS (7)
  1. AMN107 AMN+CAP [Suspect]
     Indication: CHRONIC MYELOID LEUKAEMIA
     Dosage: 800 MG, UNK
     Route: 048
     Dates: start: 20090821, end: 20091012
  2. AMN107 AMN+CAP [Suspect]
     Dosage: 400 MG, UNK
     Route: 048
     Dates: start: 20091013, end: 20091013
  3. AMN107 AMN+CAP [Suspect]
     Dosage: 800 MG, UNK
     Route: 048
     Dates: start: 20091021
  4. LASIX [Concomitant]
     Indication: CHRONIC MYELOID LEUKAEMIA
     Dosage: 40 MG, UNK
     Route: 048
     Dates: start: 20070906, end: 20091013
  5. CINAL [Concomitant]
     Indication: CHRONIC MYELOID LEUKAEMIA
     Dosage: 2 MG, UNK
     Route: 048
     Dates: start: 20081023
  6. ADONA [Concomitant]
     Indication: CHRONIC MYELOID LEUKAEMIA
     Dosage: 90 MG, UNK
     Route: 048
     Dates: start: 20081023
  7. ALFAROL [Concomitant]
     Indication: CHRONIC MYELOID LEUKAEMIA
     Dosage: 0.5 UG, UNK
     Route: 048
     Dates: start: 20090727

REACTIONS (3)
  - BLOOD GLUCOSE INCREASED [None]
  - ELECTROCARDIOGRAM QT PROLONGED [None]
  - LABELLED DRUG-FOOD INTERACTION MEDICATION ERROR [None]
